FAERS Safety Report 15249158 (Version 2)
Quarter: 2018Q3

REPORT INFORMATION
  Report Type: Spontaneous
  Country: JP (occurrence: JP)
  Receive Date: 20180807
  Receipt Date: 20180918
  Transmission Date: 20181010
  Serious: Yes (Other)
  Sender: FDA-Public Use
  Company Number: JP-BAYER-2018-136784

PATIENT
  Age: 46 Year
  Sex: Male

DRUGS (2)
  1. WARFARIN POTASSIUM [Interacting]
     Active Substance: WARFARIN POTASSIUM
  2. BAYASPIRIN 100 MG [Suspect]
     Active Substance: ASPIRIN
     Dosage: UNK, QD
     Route: 048

REACTIONS (2)
  - Haemorrhagic infarction [Recovered/Resolved]
  - Labelled drug-drug interaction medication error [None]
